FAERS Safety Report 6242439-8 (Version None)
Quarter: 2009Q2

REPORT INFORMATION
  Report Type: 
  Country: None (occurrence: None)
  Receive Date: 20090622
  Receipt Date: 20090622
  Transmission Date: 20091009
  Serious: Yes (Other)
  Sender: FDA-Public Use
  Company Number: None

PATIENT
  Age: 58 Year
  Sex: Female
  Weight: 83.9154 kg

DRUGS (1)
  1. ZICAM NASAL SWABS [Suspect]
     Indication: NASOPHARYNGITIS
     Dosage: ONE MOISTENED SWAB EVERY 3-4-HRS CUTANEOUS
     Route: 003
     Dates: start: 20070901, end: 20070904

REACTIONS (1)
  - HYPOSMIA [None]
